FAERS Safety Report 9624173 (Version 1)
Quarter: 2013Q4

REPORT INFORMATION
  Report Type: Spontaneous
  Country: US (occurrence: US)
  Receive Date: 20131015
  Receipt Date: 20131015
  Transmission Date: 20140711
  Serious: No
  Sender: FDA-Public Use
  Company Number: US-TARO-2013P1002157

PATIENT
  Age: 85 Year
  Sex: Female
  Weight: 49.9 kg

DRUGS (2)
  1. HYDROCORTISONE VALERATE CREAM USP 0.2% [Suspect]
     Indication: RASH
     Route: 061
     Dates: start: 20130206, end: 20130206
  2. VALIUM [Concomitant]

REACTIONS (1)
  - Application site pain [Recovered/Resolved]
